FAERS Safety Report 7428389-X (Version None)
Quarter: 2011Q2

REPORT INFORMATION
  Report Type: 
  Country: None (occurrence: None)
  Receive Date: 20110418
  Receipt Date: 20110418
  Transmission Date: 20111010
  Serious: Yes (Hospitalization)
  Sender: FDA-Public Use
  Company Number: None

PATIENT
  Age: 42 Year
  Sex: Female
  Weight: 61.6892 kg

DRUGS (1)
  1. BACTRIM [Suspect]
     Dosage: 2 X A DAY PO
     Route: 048

REACTIONS (3)
  - DRUG INEFFECTIVE [None]
  - CRYING [None]
  - MIGRAINE [None]
